FAERS Safety Report 4997758-X (Version None)
Quarter: 2006Q2

REPORT INFORMATION
  Report Type: 
  Country: None (occurrence: None)
  Receive Date: 20060505
  Receipt Date: 20060427
  Transmission Date: 20061013
  Serious: Yes (Other)
  Sender: FDA-Public Use
  Company Number: 2006056705

PATIENT
  Age: 76 Year
  Sex: Female
  Weight: 55.3388 kg

DRUGS (2)
  1. NATURAL CITRUS LISTERINE (MENTHOL, METHYL SALICYLATE, EUCALYPTOL, THYM [Suspect]
     Indication: DENTAL DISORDER PROPHYLAXIS
     Dosage: 1/2 CUP TWICE IN ONE DAY, ORAL
     Route: 048
     Dates: start: 20060401, end: 20060401
  2. LEVOTHYROXINE SODIUM [Concomitant]

REACTIONS (7)
  - APPLICATION SITE EXFOLIATION [None]
  - APPLICATION SITE IRRITATION [None]
  - CAUSTIC INJURY [None]
  - GINGIVAL HYPERPLASIA [None]
  - GLOSSODYNIA [None]
  - ORAL MUCOSAL EXFOLIATION [None]
  - TONGUE DISORDER [None]
